FAERS Safety Report 23156935 (Version 3)
Quarter: 2023Q4

REPORT INFORMATION
  Report Type: Report from Study
  Country: US (occurrence: US)
  Receive Date: 20231108
  Receipt Date: 20231206
  Transmission Date: 20240109
  Serious: No
  Sender: FDA-Public Use
  Company Number: US-002147023-NVSC2023US237255

PATIENT
  Sex: Female
  Weight: 104 kg

DRUGS (2)
  1. COSENTYX [Suspect]
     Active Substance: SECUKINUMAB
     Indication: Psoriasis
     Dosage: UNK
     Route: 065
     Dates: start: 202307
  2. COSENTYX [Suspect]
     Active Substance: SECUKINUMAB
     Dosage: UNK
     Route: 058

REACTIONS (5)
  - Psoriasis [Unknown]
  - Condition aggravated [Unknown]
  - Therapy partial responder [Unknown]
  - Drug ineffective [Unknown]
  - Dermatitis psoriasiform [Unknown]
